FAERS Safety Report 20729348 (Version 5)
Quarter: 2023Q1

REPORT INFORMATION
  Report Type: Report from Study
  Country: US (occurrence: US)
  Receive Date: 20220420
  Receipt Date: 20230208
  Transmission Date: 20230417
  Serious: No
  Sender: FDA-Public Use
  Company Number: US-NOVARTISTESTPH-NVSC2022US090909

PATIENT
  Age: 14 Year
  Sex: Male

DRUGS (2)
  1. OMNITROPE [Suspect]
     Active Substance: SOMATROPIN
     Indication: Short stature
     Dosage: 0.32 ML, QD
     Route: 058
     Dates: start: 20220412
  2. OMNITROPE [Suspect]
     Active Substance: SOMATROPIN
     Dosage: 0.53 ML, QD
     Route: 058
     Dates: start: 20230120

REACTIONS (3)
  - Injection site pain [Unknown]
  - Injection site mass [Recovered/Resolved]
  - Wrong technique in product usage process [Unknown]

NARRATIVE: CASE EVENT DATE: 20220412
